FAERS Safety Report 18072994 (Version 1)
Quarter: 2020Q3

REPORT INFORMATION
  Report Type: Spontaneous
  Country: US (occurrence: US)
  Receive Date: 20200727
  Receipt Date: 20200727
  Transmission Date: 20201103
  Serious: No
  Sender: FDA-Public Use
  Company Number: None

PATIENT
  Age: 56 Year
  Sex: Female
  Weight: 91.17 kg

DRUGS (8)
  1. VITAMIN C [Concomitant]
     Active Substance: ASCORBIC ACID
  2. ALEVE [Concomitant]
     Active Substance: NAPROXEN SODIUM
  3. VICTOZA [Concomitant]
     Active Substance: LIRAGLUTIDE
  4. PHENDIMETRAZINE. [Concomitant]
     Active Substance: PHENDIMETRAZINE TARTRATE
  5. VITAMIN D [Concomitant]
     Active Substance: VITAMIN D NOS
  6. MELOXICAM. [Concomitant]
     Active Substance: MELOXICAM
  7. ANTI?BAC HAND SANITIZER [Suspect]
     Active Substance: ALCOHOL
     Indication: INFECTION PROPHYLAXIS
     Dosage: ?          QUANTITY:34 FL OZ WITH PUMP;OTHER FREQUENCY:3?4 TIMES 5?6 DAYS;?
     Route: 061
     Dates: start: 20200306, end: 20200622
  8. HENTERMINE [Concomitant]

REACTIONS (3)
  - Vomiting [None]
  - Nausea [None]
  - Rash [None]

NARRATIVE: CASE EVENT DATE: 20200612
